FAERS Safety Report 25881578 (Version 1)
Quarter: 2025Q4

REPORT INFORMATION
  Report Type: Spontaneous
  Country: CN (occurrence: CN)
  Receive Date: 20251005
  Receipt Date: 20251005
  Transmission Date: 20260118
  Serious: Yes (Life-Threatening, Hospitalization, Other)
  Sender: Onesource Specialty Pharma
  Company Number: CN-STRIDES ARCOLAB LIMITED-2025OS000830

PATIENT
  Age: 59 Year
  Sex: Male

DRUGS (7)
  1. PIPERACILLIN SODIUM\TAZOBACTAM SODIUM [Suspect]
     Active Substance: PIPERACILLIN SODIUM\TAZOBACTAM SODIUM
     Indication: Enterobacter pneumonia
     Dosage: UNK
     Route: 065
  2. CASPOFUNGIN [Concomitant]
     Active Substance: CASPOFUNGIN
     Indication: Antifungal prophylaxis
     Dosage: UNK
     Route: 065
  3. CASPOFUNGIN [Concomitant]
     Active Substance: CASPOFUNGIN
     Indication: Pneumocystis jirovecii pneumonia
     Dosage: THERAPY RESTARTED; DOSE NOT STATED
     Route: 065
  4. METHYLPREDNISOLONE [Concomitant]
     Active Substance: METHYLPREDNISOLONE
     Indication: Immune thrombocytopenia
     Dosage: 60 MILLIGRAM
     Route: 065
  5. METHYLPREDNISOLONE [Concomitant]
     Active Substance: METHYLPREDNISOLONE
     Dosage: DOSE WAS GRADUALLY TAPERED BY 5MG AFTER EVERY 2 WEEKS
     Route: 065
  6. METHYLPREDNISOLONE [Concomitant]
     Active Substance: METHYLPREDNISOLONE
     Dosage: 40 MILLIGRAM
     Route: 065
  7. RAFUTROMBOPAG [Concomitant]
     Active Substance: RAFUTROMBOPAG
     Indication: Immune thrombocytopenia
     Route: 065

REACTIONS (2)
  - Acute respiratory distress syndrome [None]
  - Pneumonia [None]
